FAERS Safety Report 20310486 (Version 2)
Quarter: 2022Q2

REPORT INFORMATION
  Report Type: Spontaneous
  Country: US (occurrence: US)
  Receive Date: 20220107
  Receipt Date: 20220503
  Transmission Date: 20220721
  Serious: Yes (Hospitalization, Other)
  Sender: FDA-Public Use
  Company Number: US-SA-SAC20220106000275

PATIENT
  Age: 67 Year
  Sex: Female

DRUGS (24)
  1. DUPIXENT [Suspect]
     Active Substance: DUPILUMAB
     Indication: Asthma
     Dosage: 300 MG, QOW
     Route: 058
     Dates: start: 20190405
  2. PREDNISONE [Concomitant]
     Active Substance: PREDNISONE
  3. BENADRYL [Concomitant]
     Active Substance: DIPHENHYDRAMINE HYDROCHLORIDE
  4. ASPIRIN [Concomitant]
     Active Substance: ASPIRIN
  5. VITAMIN D NOS [Concomitant]
     Active Substance: VITAMIN D NOS
  6. METOPROLOL [Concomitant]
     Active Substance: METOPROLOL
  7. MUCINEX [Concomitant]
     Active Substance: GUAIFENESIN
  8. SPIRIVA [TIOTROPIUM BROMIDE] [Concomitant]
  9. LOSARTAN [Concomitant]
     Active Substance: LOSARTAN
  10. SYMBICORT [Concomitant]
     Active Substance: BUDESONIDE\FORMOTEROL FUMARATE DIHYDRATE
  11. MONTELUKAST [Concomitant]
     Active Substance: MONTELUKAST SODIUM
  12. PRILOSEC [Concomitant]
     Active Substance: OMEPRAZOLE MAGNESIUM
  13. ALBUTEROL [Concomitant]
     Active Substance: ALBUTEROL
  14. LYRICA [Concomitant]
     Active Substance: PREGABALIN
  15. IPRATROPIUM [Concomitant]
     Active Substance: IPRATROPIUM
  16. AZELASTINE [Concomitant]
     Active Substance: AZELASTINE
  17. METHOCARBAMOL [Concomitant]
     Active Substance: METHOCARBAMOL
  18. AMITRIPTYLINE [Concomitant]
     Active Substance: AMITRIPTYLINE
  19. PERCOCET [Concomitant]
     Active Substance: ACETAMINOPHEN\OXYCODONE HYDROCHLORIDE
  20. MELOXICAM [Concomitant]
     Active Substance: MELOXICAM
  21. METFORMIN [Concomitant]
     Active Substance: METFORMIN HYDROCHLORIDE
  22. BUDESONIDE [Concomitant]
     Active Substance: BUDESONIDE
  23. ZITHROMAX [Concomitant]
     Active Substance: AZITHROMYCIN DIHYDRATE
  24. RONASE [Concomitant]

REACTIONS (2)
  - Nephrolithiasis [Recovering/Resolving]
  - Urinary tract infection [Recovering/Resolving]
